FAERS Safety Report 22314358 (Version 1)
Quarter: 2023Q2

REPORT INFORMATION
  Report Type: Spontaneous
  Country: US (occurrence: US)
  Receive Date: 20230512
  Receipt Date: 20230512
  Transmission Date: 20230722
  Serious: Yes (Death, Hospitalization, Other)
  Sender: FDA-Public Use
  Company Number: L202300057

PATIENT
  Age: 75 Year
  Sex: Male

DRUGS (19)
  1. BENDAMUSTINE HYDROCHLORIDE [Suspect]
     Active Substance: BENDAMUSTINE HYDROCHLORIDE
     Indication: Mantle cell lymphoma
     Dosage: UNK, CYCLE 1 BRCA THERAPY
     Route: 042
  2. BENDAMUSTINE HYDROCHLORIDE [Suspect]
     Active Substance: BENDAMUSTINE HYDROCHLORIDE
     Dosage: UNK, CYCLE 2 BRCA THERAPY
     Route: 042
  3. BENDAMUSTINE HYDROCHLORIDE [Suspect]
     Active Substance: BENDAMUSTINE HYDROCHLORIDE
     Dosage: UNK, CYCLE 3 BRCA THERAPY
     Route: 042
  4. BENDAMUSTINE HYDROCHLORIDE [Suspect]
     Active Substance: BENDAMUSTINE HYDROCHLORIDE
     Dosage: UNK, CYCLE 4 BRCA THERAPY
     Route: 042
  5. BENDAMUSTINE HYDROCHLORIDE [Suspect]
     Active Substance: BENDAMUSTINE HYDROCHLORIDE
     Dosage: UNK, CYCLE 5 BRCA THERAPY
     Route: 042
  6. BENDAMUSTINE HYDROCHLORIDE [Suspect]
     Active Substance: BENDAMUSTINE HYDROCHLORIDE
     Dosage: UNK, CYCLE 6 BRCA THERAPY
     Route: 042
  7. RITUXIMAB [Concomitant]
     Active Substance: RITUXIMAB
     Indication: Mantle cell lymphoma
     Dosage: UNK, CYCLE 1 BRCA THERAPY
     Route: 042
  8. RITUXIMAB [Concomitant]
     Active Substance: RITUXIMAB
     Dosage: UNK, CYCLE 2 BRCA THERAPY
     Route: 042
  9. RITUXIMAB [Concomitant]
     Active Substance: RITUXIMAB
     Dosage: UNK, CYCLE 3 BRCA THERAPY
     Route: 042
  10. RITUXIMAB [Concomitant]
     Active Substance: RITUXIMAB
     Dosage: UNK, CYCLE 4 BRCA THERAPY
     Route: 042
  11. RITUXIMAB [Concomitant]
     Active Substance: RITUXIMAB
     Dosage: UNK, CYCLE 5 BRCA THERAPY
     Route: 042
  12. RITUXIMAB [Concomitant]
     Active Substance: RITUXIMAB
     Dosage: UNK, CYCLE 6 BRCA THERAPY
     Route: 042
  13. RITUXIMAB [Concomitant]
     Active Substance: RITUXIMAB
     Dosage: UNK, MAINTENANCE THERAPY
     Route: 042
  14. CYTARABINE [Concomitant]
     Active Substance: CYTARABINE
     Indication: Mantle cell lymphoma
     Dosage: UNK, CYCLE 1 BRCA THERAPY
     Route: 065
  15. CYTARABINE [Concomitant]
     Active Substance: CYTARABINE
     Dosage: UNK, CYCLE 2 BRCA THERAPY
     Route: 065
  16. CYTARABINE [Concomitant]
     Active Substance: CYTARABINE
     Dosage: UNK, CYCLE 3 BRCA THERAPY
     Route: 065
  17. CYTARABINE [Concomitant]
     Active Substance: CYTARABINE
     Dosage: UNK, CYCLE 4 BRCA THERAPY
     Route: 065
  18. CYTARABINE [Concomitant]
     Active Substance: CYTARABINE
     Dosage: UNK, CYCLE 5 BRCA THERAPY
     Route: 065
  19. CYTARABINE [Concomitant]
     Active Substance: CYTARABINE
     Dosage: UNK, CYCLE 6 BRCA THERAPY
     Route: 065

REACTIONS (2)
  - Adenovirus infection [Fatal]
  - Pneumocystis jirovecii pneumonia [Fatal]
